FAERS Safety Report 7300425-0 (Version None)
Quarter: 2011Q1

REPORT INFORMATION
  Report Type: 
  Country: None (occurrence: None)
  Receive Date: 20110217
  Receipt Date: 20110208
  Transmission Date: 20110831
  Serious: Yes (Other)
  Sender: FDA-Public Use
  Company Number: PHHO2010GB17819

PATIENT
  Sex: Male

DRUGS (2)
  1. ZOLEDRONATE [Suspect]
     Indication: METASTASES TO BONE
     Dosage: 3.5 MG, UNK
     Route: 042
     Dates: start: 20080819
  2. GOSERELIN [Concomitant]

REACTIONS (4)
  - BONE DEBRIDEMENT [None]
  - OSTEONECROSIS OF JAW [None]
  - TOOTH EXTRACTION [None]
  - PAIN [None]
